FAERS Safety Report 16877463 (Version 2)
Quarter: 2019Q4

REPORT INFORMATION
  Report Type: Spontaneous
  Country: US (occurrence: US)
  Receive Date: 20191002
  Receipt Date: 20191114
  Transmission Date: 20200122
  Serious: No
  Sender: FDA-Public Use
  Company Number: US-PFIZER INC-2019263939

PATIENT
  Age: 77 Year
  Sex: Female

DRUGS (1)
  1. IBRANCE [Suspect]
     Active Substance: PALBOCICLIB
     Indication: BREAST CANCER FEMALE
     Dosage: 125 MG, 1X/DAY

REACTIONS (11)
  - Neoplasm progression [Unknown]
  - Skin exfoliation [Unknown]
  - Peripheral swelling [Unknown]
  - Speech disorder [Unknown]
  - Dry skin [Unknown]
  - Alopecia [Unknown]
  - Hair texture abnormal [Unknown]
  - Weight fluctuation [Unknown]
  - Pruritus [Unknown]
  - Joint swelling [Unknown]
  - Hypoaesthesia [Unknown]
